FAERS Safety Report 18270559 (Version 4)
Quarter: 2021Q2

REPORT INFORMATION
  Report Type: Spontaneous
  Country: FR (occurrence: FR)
  Receive Date: 20200915
  Receipt Date: 20210427
  Transmission Date: 20210717
  Serious: Yes (Death, Hospitalization, Other)
  Sender: FDA-Public Use
  Company Number: FR-ELI_LILLY_AND_COMPANY-FR202009004670

PATIENT
  Age: 69 Year
  Sex: Female
  Weight: 80 kg

DRUGS (8)
  1. JANUMET [Concomitant]
     Active Substance: METFORMIN HYDROCHLORIDE\SITAGLIPTIN PHOSPHATE
     Indication: PRODUCT USED FOR UNKNOWN INDICATION
     Dosage: 2 DOSAGE FORM, DAILY
  2. RILMENIDINE [Concomitant]
     Active Substance: RILMENIDINE
     Indication: PRODUCT USED FOR UNKNOWN INDICATION
     Dosage: 1 DOSAGE FORM, DAILY
  3. ESOMEPRAZOLE. [Concomitant]
     Active Substance: ESOMEPRAZOLE MAGNESIUM
     Indication: PRODUCT USED FOR UNKNOWN INDICATION
     Dosage: UNK, UNKNOWN
     Route: 065
  4. IXPRIM [Concomitant]
     Active Substance: ACETAMINOPHEN\TRAMADOL HYDROCHLORIDE
     Indication: PRODUCT USED FOR UNKNOWN INDICATION
     Dosage: UNK
  5. COAPROVEL [Concomitant]
     Active Substance: HYDROCHLOROTHIAZIDE\IRBESARTAN
     Indication: PRODUCT USED FOR UNKNOWN INDICATION
     Dosage: 1 DOSAGE FORM, DAILY
  6. POTASSIUM [Concomitant]
     Active Substance: POTASSIUM
     Indication: MINERAL SUPPLEMENTATION
  7. CYMBALTA [Suspect]
     Active Substance: DULOXETINE HYDROCHLORIDE
     Indication: PRODUCT USED FOR UNKNOWN INDICATION
     Dosage: 60 MG, DAILY
     Route: 048
     Dates: start: 20170721, end: 20170913
  8. AMAREL [Concomitant]
     Active Substance: GLIMEPIRIDE
     Indication: PRODUCT USED FOR UNKNOWN INDICATION
     Dosage: 1 DOSAGE FORM, DAILY

REACTIONS (20)
  - Acute kidney injury [Fatal]
  - Pain [Fatal]
  - Pancreatitis [Fatal]
  - Rhabdomyolysis [Fatal]
  - Weight decreased [Fatal]
  - Confusional state [Fatal]
  - Nosocomial infection [Unknown]
  - Multiple organ dysfunction syndrome [Fatal]
  - Diabetes mellitus inadequate control [Fatal]
  - Hepatic failure [Fatal]
  - Hypersomnia [Unknown]
  - Diverticulum intestinal [Fatal]
  - Hepatic cytolysis [Fatal]
  - General physical health deterioration [Fatal]
  - Cholestasis [Fatal]
  - Hypokalaemia [Fatal]
  - Infection [Unknown]
  - Septic shock [Fatal]
  - Hepatic steatosis [Fatal]
  - Inflammation [Fatal]

NARRATIVE: CASE EVENT DATE: 201708
